FAERS Safety Report 10087979 (Version 3)
Quarter: 2014Q2

REPORT INFORMATION
  Report Type: Spontaneous
  Country: US (occurrence: US)
  Receive Date: 20140419
  Receipt Date: 20140506
  Transmission Date: 20141212
  Serious: No
  Sender: FDA-Public Use
  Company Number: US-AMGEN-USASP2014019612

PATIENT
  Age: 55 Year
  Sex: Male
  Weight: 123.9 kg

DRUGS (5)
  1. PROLIA [Suspect]
     Indication: OSTEOPOROSIS
     Dosage: UNK
     Route: 058
     Dates: start: 20140128
  2. CALCIUM [Concomitant]
     Indication: OSTEOPENIA
     Dosage: 500 MG, QD
     Route: 048
  3. COLACE [Concomitant]
     Indication: CONSTIPATION
     Dosage: UNK UNK, QD
  4. DIOVAN [Concomitant]
     Indication: HYPERTENSION
     Dosage: 160 MG, QD
     Route: 048
  5. PROTONIX [Concomitant]
     Dosage: 40 MG, QD
     Route: 048

REACTIONS (3)
  - Breast swelling [Not Recovered/Not Resolved]
  - Breast tenderness [Not Recovered/Not Resolved]
  - Rash [Recovered/Resolved]
